FAERS Safety Report 13522797 (Version 1)
Quarter: 2017Q2

REPORT INFORMATION
  Report Type: Spontaneous
  Country: CH (occurrence: CH)
  Receive Date: 20170508
  Receipt Date: 20170508
  Transmission Date: 20170830
  Serious: Yes (Hospitalization)
  Sender: FDA-Public Use
  Company Number: CH-009507513-1705CHE002095

PATIENT
  Age: 76 Year
  Sex: Male

DRUGS (10)
  1. JANUMET [Suspect]
     Active Substance: METFORMIN HYDROCHLORIDE\SITAGLIPTIN PHOSPHATE
     Indication: DIABETES MELLITUS
     Dosage: 2 TABLET, QD
     Route: 048
  2. DEXAMETHASONE. [Interacting]
     Active Substance: DEXAMETHASONE
     Indication: OEDEMA
     Dosage: 4 MG- HALF TABLET  DAILY
     Route: 048
     Dates: start: 20161228
  3. DIAMICRON MR [Interacting]
     Active Substance: GLICLAZIDE
     Dosage: 60 MG, QD
     Route: 048
  4. ESOMEP [Concomitant]
     Active Substance: ESOMEPRAZOLE
     Dosage: 40 MG, BID
     Route: 048
  5. ASPIRIN CARDIO [Concomitant]
     Active Substance: ASPIRIN
     Dosage: 100 MG, QD
     Route: 048
  6. PERINDOPRIL ARGININE [Concomitant]
     Active Substance: PERINDOPRIL ARGININE
     Dosage: 5 MG, QD
     Route: 048
  7. CONCOR [Concomitant]
     Active Substance: BISOPROLOL FUMARATE
     Dosage: 2.5 MG, QD
     Route: 048
  8. ALDACTONE [Concomitant]
     Active Substance: SPIRONOLACTONE
     Dosage: 25 MG, QD
     Route: 048
  9. TOREM [Interacting]
     Active Substance: TORSEMIDE
     Dosage: 5 MG, QD
     Route: 048
  10. VITAMIN D3 STREULI [Concomitant]
     Dosage: SOLUTION 4000 IU/ML 0.25 ML WITH PIPETTE

REACTIONS (1)
  - Hyperglycaemia [Recovered/Resolved]

NARRATIVE: CASE EVENT DATE: 20170106
